FAERS Safety Report 14844224 (Version 2)
Quarter: 2018Q4

REPORT INFORMATION
  Report Type: Spontaneous
  Country: IN (occurrence: IN)
  Receive Date: 20180503
  Receipt Date: 20181106
  Transmission Date: 20190204
  Serious: Yes (Other)
  Sender: FDA-Public Use
  Company Number: IN-PFIZER INC-2018178300

PATIENT
  Age: 28 Year
  Sex: Male

DRUGS (12)
  1. ATIVAN [Concomitant]
     Active Substance: LORAZEPAM
     Dosage: 1 MG, 1X/DAY (AT BEDTIMEX 15 DAYS)
  2. NEURAL /00324901/ [Concomitant]
     Dosage: 150 MG, 2X/DAY
     Dates: start: 201711
  3. CYCLOSPORINE. [Concomitant]
     Active Substance: CYCLOSPORINE
     Dosage: UNK
     Dates: start: 201710, end: 201804
  4. PREDNISOLONE. [Concomitant]
     Active Substance: PREDNISOLONE
     Dosage: 60 MG, DAILY
  5. PAUSE [Concomitant]
     Dosage: 500 MG, 3X/DAY
  6. COREX [Concomitant]
     Dosage: (2 TSF) UNK, 3X/DAY (1 WEEKS)
  7. ATGAM [Suspect]
     Active Substance: EQUINE THYMOCYTE IMMUNE GLOBULIN
     Indication: APLASTIC ANAEMIA
     Dosage: (35 VIALS OF ATGAM 250 MG),UNK
     Route: 048
     Dates: start: 20180426
  8. ELTROM [Concomitant]
     Dosage: 50 MG, DAILY
     Dates: start: 20171108, end: 201804
  9. ESOMAC /01479301/ [Concomitant]
     Dosage: 1 DF, 1X/DAY (1 MONTH)
  10. PERINORM [Concomitant]
     Dosage: 10 MG, 3X/DAY (X 3 DAYS)
  11. VORICONAZOLE. [Concomitant]
     Active Substance: VORICONAZOLE
     Dosage: 200 MG, 2X/DAY (X 2 WEEKS)
  12. DUPHALAC [Concomitant]
     Active Substance: LACTULOSE
     Dosage: 20 ML, UNK

REACTIONS (6)
  - Product use issue [Unknown]
  - Insomnia [Unknown]
  - Arthralgia [Unknown]
  - Pulmonary mycosis [Unknown]
  - Fungal infection [Unknown]
  - Cough [Unknown]
